FAERS Safety Report 15997840 (Version 3)
Quarter: 2019Q2

REPORT INFORMATION
  Report Type: Report from Study
  Country: AU (occurrence: AU)
  Receive Date: 20190222
  Receipt Date: 20190410
  Transmission Date: 20190711
  Serious: Yes (Other)
  Sender: FDA-Public Use
  Company Number: AU-REGENERON PHARMACEUTICALS, INC.-2019-17877

PATIENT

DRUGS (2)
  1. EYLEA [Suspect]
     Active Substance: AFLIBERCEPT
     Indication: NEOVASCULAR AGE-RELATED MACULAR DEGENERATION
     Dosage: EVERY 4 WEEKS
     Dates: start: 20180511
  2. EYLEA [Suspect]
     Active Substance: AFLIBERCEPT
     Dosage: EVERY 5 WEEKS

REACTIONS (2)
  - Visual impairment [Recovered/Resolved]
  - Visual impairment [Unknown]
